APPROVED DRUG PRODUCT: LORTAB
Active Ingredient: ACETAMINOPHEN; HYDROCODONE BITARTRATE
Strength: 500MG;10MG
Dosage Form/Route: TABLET;ORAL
Application: A040100 | Product #001
Applicant: UCB INC
Approved: Jan 26, 1996 | RLD: No | RS: No | Type: DISCN